FAERS Safety Report 22147151 (Version 6)
Quarter: 2023Q4

REPORT INFORMATION
  Report Type: Spontaneous
  Country: US (occurrence: US)
  Receive Date: 20230328
  Receipt Date: 20231219
  Transmission Date: 20240109
  Serious: No
  Sender: FDA-Public Use
  Company Number: US-PFIZER INC-PV202300033535

PATIENT
  Age: 84 Year
  Sex: Female
  Weight: 65.2 kg

DRUGS (4)
  1. IBRANCE [Suspect]
     Active Substance: PALBOCICLIB
     Indication: Breast cancer
     Dosage: 125 MG, 1X/DAY
     Route: 048
  2. IBRANCE [Suspect]
     Active Substance: PALBOCICLIB
     Indication: Breast cancer metastatic
     Dosage: 125 MG ONCE A DAY FOR 21 DAYS; THEN 7 DAYS OFF; REPEAT EVERY 28 DAYS
     Route: 048
     Dates: start: 20230221
  3. AROMASIN [Suspect]
     Active Substance: EXEMESTANE
     Indication: Breast cancer metastatic
     Dosage: 25 MG, 1X/DAY, TAKE 1 TABLET (25 MG TOTAL) BY MOUTH EVERY MORNING AFTER BREAKFAST
     Route: 048
     Dates: start: 20230217
  4. AROMASIN [Suspect]
     Active Substance: EXEMESTANE
     Indication: Breast cancer

REACTIONS (3)
  - Neoplasm progression [Unknown]
  - Stomatitis [Unknown]
  - Anaemia [Unknown]
